FAERS Safety Report 9888849 (Version 1)
Quarter: 2014Q1

REPORT INFORMATION
  Report Type: Spontaneous
  Country: US (occurrence: None)
  Receive Date: 20140210
  Receipt Date: 20140210
  Transmission Date: 20141002
  Serious: No
  Sender: FDA-Public Use
  Company Number: None

PATIENT
  Age: 77 Year
  Sex: Male
  Weight: 70.31 kg

DRUGS (2)
  1. LEUPROLIDE [Suspect]
     Indication: PROSTATE CANCER STAGE II
     Dosage: 30 MG/INJECTION?EVERY 4 MONTHS?INTO GLUTEUS MUSCLE
     Dates: start: 20111111, end: 20131112
  2. LEUPROLIDE [Suspect]
     Dosage: 30 MG/INJECTION?EVERY 4 MONTHS?INTO GLUTEUS MUSCLE
     Dates: start: 20111111, end: 20131112

REACTIONS (2)
  - Paraesthesia [None]
  - Transient ischaemic attack [None]
